FAERS Safety Report 6447814-4 (Version None)
Quarter: 2009Q4

REPORT INFORMATION
  Report Type: 
  Country: None (occurrence: None)
  Receive Date: 20091120
  Receipt Date: 20090824
  Transmission Date: 20100525
  Serious: No
  Sender: FDA-Public Use
  Company Number: A0803781A

PATIENT
  Age: 56 Year
  Sex: Male

DRUGS (1)
  1. VERAMYST [Suspect]
     Dosage: 4PUFF FOUR TIMES PER DAY
     Route: 045
     Dates: start: 20090430

REACTIONS (2)
  - DRUG INEFFECTIVE [None]
  - OVERDOSE [None]
